FAERS Safety Report 8085005-4 (Version None)
Quarter: 2012Q1

REPORT INFORMATION
  Report Type: 
  Country: None (occurrence: None)
  Receive Date: 20120128
  Receipt Date: 20110311
  Transmission Date: 20120608
  Serious: No
  Sender: FDA-Public Use
  Company Number: US-ABBOTT-11P-163-0711162-00

PATIENT
  Sex: Female
  Weight: 61.29 kg

DRUGS (9)
  1. HUMIRA [Suspect]
     Indication: RHEUMATOID ARTHRITIS
     Dates: start: 20110218
  2. LAMICTAL [Concomitant]
     Indication: NEUROPATHY PERIPHERAL
  3. METHOTREXATE [Concomitant]
     Indication: RHEUMATOID ARTHRITIS
  4. VITAMIN D [Concomitant]
     Indication: VITAMIN SUPPLEMENTATION
  5. FOLIC ACID [Concomitant]
     Indication: VITAMIN SUPPLEMENTATION
  6. PREDNISONE TAB [Concomitant]
     Indication: RHEUMATOID ARTHRITIS
  7. ADDERALL 5 [Concomitant]
     Indication: ATTENTION DEFICIT/HYPERACTIVITY DISORDER
  8. CYMBALTA [Concomitant]
     Indication: NEUROPATHY PERIPHERAL
  9. AMBIEN [Concomitant]
     Indication: INSOMNIA

REACTIONS (4)
  - RASH GENERALISED [None]
  - CHILLS [None]
  - HOT FLUSH [None]
  - FATIGUE [None]
